FAERS Safety Report 14949044 (Version 1)
Quarter: 2018Q2

REPORT INFORMATION
  Report Type: Spontaneous
  Country: NL (occurrence: NL)
  Receive Date: 20180529
  Receipt Date: 20180529
  Transmission Date: 20180711
  Serious: Yes (Death)
  Sender: FDA-Public Use
  Company Number: NL-PFIZER INC-2018214471

PATIENT

DRUGS (1)
  1. LEVETIRACETAM PFIZER [Suspect]
     Active Substance: LEVETIRACETAM

REACTIONS (1)
  - Death [Fatal]
